FAERS Safety Report 7629372-1 (Version None)
Quarter: 2011Q3

REPORT INFORMATION
  Report Type: 
  Country: None (occurrence: None)
  Receive Date: 20110722
  Receipt Date: 20110713
  Transmission Date: 20111222
  Serious: Yes (Other)
  Sender: FDA-Public Use
  Company Number: DE-JNJFOC-20110506800

PATIENT
  Sex: Male
  Weight: 90 kg

DRUGS (4)
  1. HYDROCHLOROTHIAZIDE [Concomitant]
     Route: 065
  2. ALLOPURINOL [Concomitant]
     Route: 065
  3. LIPIDIL [Concomitant]
     Route: 065
  4. STELARA [Suspect]
     Indication: PSORIASIS
     Route: 058
     Dates: start: 20090422, end: 20110224

REACTIONS (1)
  - GASTROINTESTINAL CARCINOMA [None]
